FAERS Safety Report 7818387-6 (Version None)
Quarter: 2011Q4

REPORT INFORMATION
  Report Type: 
  Country: None (occurrence: None)
  Receive Date: 20111017
  Receipt Date: 20111010
  Transmission Date: 20120403
  Serious: Yes (Hospitalization)
  Sender: FDA-Public Use
  Company Number: US-AMGEN-USASP2011052419

PATIENT
  Age: 73 Year
  Sex: Female

DRUGS (3)
  1. REMICADE [Concomitant]
  2. METHOTREXATE [Concomitant]
     Dosage: 4 MG, QWK
     Dates: start: 20110728
  3. ENBREL [Suspect]
     Indication: RHEUMATOID ARTHRITIS
     Dosage: 25 MG, 2 TIMES/WK
     Dates: start: 19970101, end: 20040101

REACTIONS (13)
  - RHEUMATOID ARTHRITIS [None]
  - PRURITUS [None]
  - BLOOD PRESSURE INCREASED [None]
  - HYPERGLYCAEMIA [None]
  - ABDOMINAL DISTENSION [None]
  - OROPHARYNGEAL PAIN [None]
  - ALOPECIA [None]
  - ONYCHALGIA [None]
  - DEHYDRATION [None]
  - SKIN ULCER [None]
  - ONYCHOCLASIS [None]
  - DIARRHOEA [None]
  - DRUG INEFFECTIVE [None]
